FAERS Safety Report 6698032-6 (Version None)
Quarter: 2010Q2

REPORT INFORMATION
  Report Type: 
  Country: None (occurrence: None)
  Receive Date: 20100427
  Receipt Date: 20100413
  Transmission Date: 20101027
  Serious: Yes (Death, Life-Threatening, Disabling)
  Sender: FDA-Public Use
  Company Number: SE-RANBAXY-2010RR-33259

PATIENT
  Age: 71 Year
  Sex: Female

DRUGS (4)
  1. ZOCOR [Suspect]
  2. LOTREL [Concomitant]
  3. ECOTRIN [Concomitant]
  4. RILUTEK [Concomitant]

REACTIONS (2)
  - AMYOTROPHIC LATERAL SCLEROSIS [None]
  - DYSARTHRIA [None]
